FAERS Safety Report 4393746-5 (Version None)
Quarter: 2004Q3

REPORT INFORMATION
  Report Type: 
  Country: None (occurrence: None)
  Receive Date: 20040709
  Receipt Date: 20040629
  Transmission Date: 20050211
  Serious: Yes (Hospitalization)
  Sender: FDA-Public Use
  Company Number: P04-003596

PATIENT
  Sex: Female

DRUGS (3)
  1. SPEKTRAMOX [Suspect]
     Indication: INFECTION
     Dosage: 1U THREE TIMES PER DAY
     Route: 048
     Dates: start: 20040130, end: 20040208
  2. ZOLOFT [Concomitant]
     Indication: DRUG USE FOR UNKNOWN INDICATION
  3. ESTRACOMB [Concomitant]
     Indication: DRUG USE FOR UNKNOWN INDICATION

REACTIONS (6)
  - DECREASED APPETITE [None]
  - JAUNDICE [None]
  - LIVER DISORDER [None]
  - NAUSEA [None]
  - PRURITUS [None]
  - WEIGHT DECREASED [None]
